FAERS Safety Report 9869864 (Version 1)
Quarter: 2014Q1

REPORT INFORMATION
  Report Type: Spontaneous
  Country: PL (occurrence: None)
  Receive Date: 20140131
  Receipt Date: 20140131
  Transmission Date: 20141002
  Serious: Yes (Hospitalization)
  Sender: FDA-Public Use
  Company Number: 152512

PATIENT
  Age: 39 Year
  Sex: Male

DRUGS (2)
  1. ETOPOSIDE [Suspect]
     Indication: TESTICULAR NEOPLASM
  2. CISPLATIN [Suspect]
     Indication: TESTICULAR NEOPLASM

REACTIONS (1)
  - Acute myocardial infarction [None]
